FAERS Safety Report 4289971-4 (Version None)
Quarter: 2004Q1

REPORT INFORMATION
  Report Type: 
  Country: None (occurrence: None)
  Receive Date: 20040209
  Receipt Date: 20040129
  Transmission Date: 20041129
  Serious: Yes (Hospitalization)
  Sender: FDA-Public Use
  Company Number: DE-ROCHE-357741

PATIENT
  Age: 60 Year
  Weight: 73 kg

DRUGS (8)
  1. KEVATRIL [Suspect]
     Indication: DRUG USE FOR UNKNOWN INDICATION
     Route: 042
     Dates: start: 20031230
  2. TAXOTERE [Suspect]
     Indication: DRUG USE FOR UNKNOWN INDICATION
     Route: 042
     Dates: start: 20031230
  3. FORTECORTIN [Suspect]
     Indication: DRUG USE FOR UNKNOWN INDICATION
     Dosage: ROUTE IS REPORTED AS IV/ ORAL.  DOSING REGIMEN IS REPORTED AS 1-0-1.
     Route: 042
     Dates: start: 20031229, end: 20031231
  4. PASPERTIN [Suspect]
     Indication: DRUG USE FOR UNKNOWN INDICATION
     Route: 048
     Dates: start: 20031230, end: 20040102
  5. BERODUAL [Concomitant]
  6. BEROTEC [Concomitant]
  7. IMAP [Concomitant]
  8. PANTOZOL [Concomitant]

REACTIONS (6)
  - ARTHRALGIA [None]
  - MYALGIA [None]
  - OEDEMA PERIPHERAL [None]
  - PARAINFLUENZAE VIRUS INFECTION [None]
  - PYREXIA [None]
  - THROMBOPHLEBITIS [None]
